FAERS Safety Report 5370550-2 (Version None)
Quarter: 2007Q2

REPORT INFORMATION
  Report Type: 
  Country: None (occurrence: None)
  Receive Date: 20070622
  Receipt Date: 20070606
  Transmission Date: 20071010
  Serious: Yes (Death, Other)
  Sender: FDA-Public Use
  Company Number: 8024779

PATIENT
  Age: 75 Year
  Sex: Female

DRUGS (3)
  1. PREDNISOLONE [Suspect]
  2. NICORANDIL [Suspect]
     Indication: MYOCARDIAL ISCHAEMIA
     Dosage: 30 MG 2/D
  3. ISCHAEMIC HEART DISORDER THERAPY [Concomitant]

REACTIONS (6)
  - ANAL ULCER [None]
  - ANASTOMOTIC ULCER [None]
  - NO THERAPEUTIC RESPONSE [None]
  - POST PROCEDURAL COMPLICATION [None]
  - REFUSAL OF TREATMENT BY PATIENT [None]
  - SMALL INTESTINAL PERFORATION [None]
